FAERS Safety Report 9226268 (Version 2)
Quarter: 2013Q2

REPORT INFORMATION
  Report Type: Spontaneous
  Country: US (occurrence: US)
  Receive Date: 20130411
  Receipt Date: 20130507
  Transmission Date: 20140414
  Serious: No
  Sender: FDA-Public Use
  Company Number: US-PFIZER INC-2013109904

PATIENT
  Age: 69 Year
  Sex: Female
  Weight: 76.64 kg

DRUGS (6)
  1. CLINDAMYCIN PHOSPHATE [Suspect]
     Indication: ACNE
     Dosage: 1 %, 2X/DAY
     Route: 061
     Dates: start: 20130403
  2. PRAZOSIN [Concomitant]
     Indication: SCLERODERMA
     Dosage: 1 MG, 2X/DAY
  3. PRAZOSIN [Concomitant]
     Indication: RAYNAUD^S PHENOMENON
  4. NITROGLYCERIN [Concomitant]
     Indication: RAYNAUD^S PHENOMENON
     Dosage: UNK
  5. CALCIUM [Concomitant]
     Dosage: UNK
  6. VITAMIN D3 [Concomitant]
     Dosage: UNK

REACTIONS (3)
  - Poor quality drug administered [Recovered/Resolved]
  - Product label confusion [Unknown]
  - Product packaging issue [Recovered/Resolved]
